FAERS Safety Report 23415769 (Version 1)
Quarter: 2024Q1

REPORT INFORMATION
  Report Type: Spontaneous
  Country: SA (occurrence: SA)
  Receive Date: 20240118
  Receipt Date: 20240118
  Transmission Date: 20240410
  Serious: Yes (Other)
  Sender: FDA-Public Use
  Company Number: SA-VIIV HEALTHCARE LIMITED-SA2024EME006508

PATIENT

DRUGS (1)
  1. TIVICAY [Suspect]
     Active Substance: DOLUTEGRAVIR SODIUM
     Indication: HIV infection
     Dosage: UNK UNK, BID

REACTIONS (2)
  - Tuberculosis [Unknown]
  - Treatment noncompliance [Unknown]
